FAERS Safety Report 17828614 (Version 1)
Quarter: 2020Q2

REPORT INFORMATION
  Report Type: Spontaneous
  Country: KR (occurrence: KR)
  Receive Date: 20200527
  Receipt Date: 20200527
  Transmission Date: 20200714
  Serious: Yes (Hospitalization)
  Sender: FDA-Public Use
  Company Number: KR-GUERBET-KR-20200058

PATIENT
  Age: 59 Year
  Sex: Female

DRUGS (1)
  1. OPTIRAY 320 [Suspect]
     Active Substance: IOVERSOL
     Indication: PRODUCT USED FOR UNKNOWN INDICATION
     Route: 065

REACTIONS (5)
  - Sensory disturbance [Unknown]
  - Palpitations [Unknown]
  - Visual impairment [Unknown]
  - Flushing [Unknown]
  - Dizziness [Unknown]
